FAERS Safety Report 6923976-7 (Version None)
Quarter: 2010Q3

REPORT INFORMATION
  Report Type: 
  Country: None (occurrence: None)
  Receive Date: 20100813
  Receipt Date: 20100805
  Transmission Date: 20110219
  Serious: Yes (Other)
  Sender: FDA-Public Use
  Company Number: US-ELI_LILLY_AND_COMPANY-US201008000625

PATIENT
  Sex: Female
  Weight: 136.5 kg

DRUGS (11)
  1. BYETTA [Suspect]
     Indication: INSULIN-REQUIRING TYPE 2 DIABETES MELLITUS
     Dosage: 5 UG, 2/D
     Route: 058
  2. BYETTA [Suspect]
     Dosage: 10 UG, 2/D
     Route: 058
  3. LANTUS [Concomitant]
     Dosage: 35 U, EACH MORNING
  4. LANTUS [Concomitant]
     Dosage: 45 U, EACH EVENING
  5. METFORMIN HCL [Concomitant]
     Dosage: UNK, 3/D
  6. GLIPIZIDE [Concomitant]
     Dosage: 5 MG, 2/D
  7. ACTOS [Concomitant]
     Dosage: 30 MG, DAILY (1/D)
  8. PRILOSEC [Concomitant]
     Dosage: UNK, DAILY (1/D)
  9. ANTACID TAB [Concomitant]
     Indication: DYSPEPSIA
     Dosage: UNK, AS NEEDED
  10. DIOVAN [Concomitant]
     Dosage: 1 D/F, DAILY (1/D)
  11. PHENERGAN [Concomitant]
     Dosage: UNK, DAILY (1/D)

REACTIONS (10)
  - COUGH [None]
  - DIARRHOEA [None]
  - HAEMATEMESIS [None]
  - NAUSEA [None]
  - OFF LABEL USE [None]
  - PANCREATITIS [None]
  - PNEUMONIA [None]
  - PYREXIA [None]
  - VOMITING [None]
  - WEIGHT DECREASED [None]
